FAERS Safety Report 5585106-6 (Version None)
Quarter: 2008Q1

REPORT INFORMATION
  Report Type: 
  Country: None (occurrence: None)
  Receive Date: 20080109
  Receipt Date: 20071212
  Transmission Date: 20080703
  Serious: No
  Sender: FDA-Public Use
  Company Number: US-BOEHRINGER INGELHEIM PHARMACEUTICALS, INC.-2007-BP-26163BP

PATIENT
  Sex: Female

DRUGS (4)
  1. ZANTAC 150 [Suspect]
     Indication: GASTROOESOPHAGEAL REFLUX DISEASE
     Route: 048
     Dates: start: 20071101
  2. ZANTAC 150 [Suspect]
     Indication: IMPAIRED GASTRIC EMPTYING
  3. ACIPHEX [Suspect]
  4. LISINOPRIL [Concomitant]

REACTIONS (3)
  - BLOOD PRESSURE DECREASED [None]
  - BREAST TENDERNESS [None]
  - DIZZINESS [None]
